FAERS Safety Report 8911622 (Version 1)
Quarter: 2012Q4

REPORT INFORMATION
  Report Type: 
  Country: US (occurrence: US)
  Receive Date: 20121116
  Receipt Date: 20121116
  Transmission Date: 20130627
  Serious: Yes (Hospitalization)
  Sender: FDA-Public Use
  Company Number: US-BAYER-2012-117986

PATIENT
  Age: 40 Year
  Sex: Female
  Weight: 92.06 kg

DRUGS (11)
  1. GIANVI [Suspect]
  2. YAZ [Suspect]
  3. PROMETHAZINE [Concomitant]
     Dosage: 25 mg, UNK
     Dates: start: 20110527
  4. MAXALT [Concomitant]
     Dosage: UNK
     Dates: start: 20110528, end: 20110530
  5. CYMBALTA [Concomitant]
     Dosage: UNK
     Dates: start: 20110530
  6. NUBAIN [Concomitant]
     Dosage: 30 mg, UNK
     Dates: start: 20110530
  7. PHENERGAN [Concomitant]
     Indication: NAUSEA
     Dosage: 1 every 6 [hours as needed]
  8. PHENERGAN [Concomitant]
     Indication: VOMITING
  9. LORTAB [Concomitant]
     Dosage: 5/500mg, every 6 hours
     Dates: start: 20120531
  10. PRILOSEC [Concomitant]
     Dosage: 40 mg, a day
     Dates: start: 20110623
  11. MIDRIN [Concomitant]
     Indication: MIGRAINE HEADACHE
     Dosage: 1 every 6 hours as needed

REACTIONS (2)
  - Intracranial venous sinus thrombosis [None]
  - Off label use [None]
